FAERS Safety Report 23628124 (Version 2)
Quarter: 2024Q2

REPORT INFORMATION
  Report Type: Spontaneous
  Country: CH (occurrence: CH)
  Receive Date: 20240313
  Receipt Date: 20240502
  Transmission Date: 20240716
  Serious: Yes (Other)
  Sender: FDA-Public Use
  Company Number: CH-PHARMAMAR-2024PM000026

PATIENT
  Sex: Female

DRUGS (1)
  1. ZEPZELCA [Suspect]
     Active Substance: LURBINECTEDIN
     Indication: Small cell lung cancer extensive stage
     Dosage: 3.2 MILLIGRAM/SQ. METER, Q3W
     Route: 042

REACTIONS (2)
  - Disease progression [Unknown]
  - Off label use [Unknown]
